FAERS Safety Report 4732441-7 (Version None)
Quarter: 2005Q3

REPORT INFORMATION
  Report Type: 
  Country: None (occurrence: None)
  Receive Date: 20050801
  Receipt Date: 20050725
  Transmission Date: 20060218
  Serious: Yes (Hospitalization, Disabling)
  Sender: FDA-Public Use
  Company Number: HQWYE457323OCT03

PATIENT
  Age: 32 Year
  Sex: Male

DRUGS (22)
  1. DIMETAPP [Suspect]
     Indication: HYPERSENSITIVITY
     Dosage: SEE IMAGE
     Route: 048
     Dates: start: 19991121, end: 19991122
  2. DIMETAPP [Suspect]
     Indication: INFLUENZA
     Dosage: SEE IMAGE
     Route: 048
     Dates: start: 19991121, end: 19991122
  3. DIMETAPP [Suspect]
     Indication: NASOPHARYNGITIS
     Dosage: SEE IMAGE
     Route: 048
     Dates: start: 19991121, end: 19991122
  4. DIMETAPP [Suspect]
     Indication: SINUS DISORDER
     Dosage: SEE IMAGE
     Route: 048
     Dates: start: 19991121, end: 19991122
  5. DIMETAPP [Suspect]
     Indication: HYPERSENSITIVITY
     Dosage: SEE IMAGE
     Route: 048
     Dates: start: 19991119
  6. DIMETAPP [Suspect]
     Indication: INFLUENZA
     Dosage: SEE IMAGE
     Route: 048
     Dates: start: 19991119
  7. DIMETAPP [Suspect]
     Indication: NASOPHARYNGITIS
     Dosage: SEE IMAGE
     Route: 048
     Dates: start: 19991119
  8. DIMETAPP [Suspect]
     Indication: SINUS DISORDER
     Dosage: SEE IMAGE
     Route: 048
     Dates: start: 19991119
  9. ALKA-SELTZER ACETYLSALICYCLIC ACID/CITRIC ACID/SODIUM BICARBONATE) [Suspect]
     Indication: HYPERSENSITIVITY
     Dosage: ORAL
     Route: 048
     Dates: start: 19991119
  10. ALKA-SELTZER ACETYLSALICYCLIC ACID/CITRIC ACID/SODIUM BICARBONATE) [Suspect]
     Indication: INFLUENZA
     Dosage: ORAL
     Route: 048
     Dates: start: 19991119
  11. ALKA-SELTZER ACETYLSALICYCLIC ACID/CITRIC ACID/SODIUM BICARBONATE) [Suspect]
     Indication: NASOPHARYNGITIS
     Dosage: ORAL
     Route: 048
     Dates: start: 19991119
  12. ALKA-SELTZER ACETYLSALICYCLIC ACID/CITRIC ACID/SODIUM BICARBONATE) [Suspect]
     Indication: SINUS DISORDER
     Dosage: ORAL
     Route: 048
     Dates: start: 19991119
  13. ALKA-SELTZER PLUS NIGHT-TIME COLD (DEXTROMETHORPHAN HYDROBROMIDE/DOXYL [Suspect]
     Dosage: ORAL
     Route: 048
  14. BC (ACETYLSALICYLIC ACID/CAFFEINE/SALICYLAMIDE, POWDER) [Suspect]
     Indication: HYPERSENSITIVITY
     Dosage: ORAL
     Route: 048
     Dates: start: 19991119
  15. BC (ACETYLSALICYLIC ACID/CAFFEINE/SALICYLAMIDE, POWDER) [Suspect]
     Indication: INFLUENZA
     Dosage: ORAL
     Route: 048
     Dates: start: 19991119
  16. BC (ACETYLSALICYLIC ACID/CAFFEINE/SALICYLAMIDE, POWDER) [Suspect]
     Indication: NASOPHARYNGITIS
     Dosage: ORAL
     Route: 048
     Dates: start: 19991119
  17. BC (ACETYLSALICYLIC ACID/CAFFEINE/SALICYLAMIDE, POWDER) [Suspect]
     Indication: SINUS DISORDER
     Dosage: ORAL
     Route: 048
     Dates: start: 19991119
  18. ROBITUSSIN (GUAIFENESIN, SYRUP) [Suspect]
     Dosage: ORAL
     Route: 048
  19. ROBITUSSIN CF (DEXTROMETHORPHAN HYDROBROMIDE/GUAIFENESIN/PHENYLPROPANO [Suspect]
     Indication: HYPERSENSITIVITY
     Dosage: ORAL
     Route: 048
     Dates: start: 19991119
  20. ROBITUSSIN CF (DEXTROMETHORPHAN HYDROBROMIDE/GUAIFENESIN/PHENYLPROPANO [Suspect]
     Indication: INFLUENZA
     Dosage: ORAL
     Route: 048
     Dates: start: 19991119
  21. ROBITUSSIN CF (DEXTROMETHORPHAN HYDROBROMIDE/GUAIFENESIN/PHENYLPROPANO [Suspect]
     Indication: NASOPHARYNGITIS
     Dosage: ORAL
     Route: 048
     Dates: start: 19991119
  22. ROBITUSSIN CF (DEXTROMETHORPHAN HYDROBROMIDE/GUAIFENESIN/PHENYLPROPANO [Suspect]
     Indication: SINUS DISORDER
     Dosage: ORAL
     Route: 048
     Dates: start: 19991119

REACTIONS (1)
  - CEREBROVASCULAR ACCIDENT [None]
